FAERS Safety Report 17269335 (Version 1)
Quarter: 2020Q1

REPORT INFORMATION
  Report Type: Spontaneous
  Country: FI (occurrence: FI)
  Receive Date: 20200114
  Receipt Date: 20200114
  Transmission Date: 20200409
  Serious: Yes (Other)
  Sender: FDA-Public Use
  Company Number: FI-MYLANLABS-2020M1003455

PATIENT
  Age: 53 Year
  Sex: Female

DRUGS (6)
  1. PRASUGREL. [Suspect]
     Active Substance: PRASUGREL
     Indication: PRODUCT USED FOR UNKNOWN INDICATION
     Dosage: 10 MILLIGRAM, QD
     Route: 048
  2. REOPRO [Suspect]
     Active Substance: ABCIXIMAB
     Indication: INTRACRANIAL ANEURYSM
     Dosage: UNK
     Route: 040
  3. PRASUGREL. [Suspect]
     Active Substance: PRASUGREL
     Indication: PROPHYLAXIS
     Dosage: 60 MG 2 H BEFORE THE ABCIXIMAB INFUSION WAS FINISHED
  4. ASPIRIN                            /00002701/ [Suspect]
     Active Substance: ASPIRIN
     Indication: PROPHYLAXIS
     Dosage: 100 MILLIGRAM, QD
  5. HEPARIN [Suspect]
     Active Substance: HEPARIN SODIUM
     Indication: INTRACRANIAL ANEURYSM
     Dosage: INTRAPROCEDURAL HEPARIN 5000 TO 7000 U
     Route: 042
  6. ASPIRIN                            /00002701/ [Suspect]
     Active Substance: ASPIRIN
     Indication: INTRACRANIAL ANEURYSM
     Dosage: 250 TO 500 MG

REACTIONS (3)
  - Product use in unapproved indication [Unknown]
  - Off label use [Unknown]
  - Gastric haemorrhage [Unknown]
